FAERS Safety Report 9551072 (Version 1)
Quarter: 2013Q3

REPORT INFORMATION
  Report Type: Spontaneous
  Country: US (occurrence: US)
  Receive Date: 20130925
  Receipt Date: 20130925
  Transmission Date: 20140515
  Serious: Yes (Other)
  Sender: FDA-Public Use
  Company Number: US-AMGEN-USASP2013065810

PATIENT
  Sex: Female

DRUGS (1)
  1. NPLATE [Suspect]
     Indication: PRODUCT USED FOR UNKNOWN INDICATION
     Dosage: 8 MUG/KG, UNK
     Route: 065

REACTIONS (4)
  - Platelet count decreased [Unknown]
  - Myalgia [Unknown]
  - Walking aid user [Unknown]
  - Headache [Unknown]
